FAERS Safety Report 4386126-X (Version None)
Quarter: 2004Q2

REPORT INFORMATION
  Report Type: 
  Country: None (occurrence: None)
  Receive Date: 20040629
  Receipt Date: 20040618
  Transmission Date: 20050107
  Serious: Yes (Hospitalization)
  Sender: FDA-Public Use
  Company Number: NO-MERCK-0406NOR00017

PATIENT
  Age: 75 Year
  Sex: Male

DRUGS (1)
  1. FOSAMAX [Suspect]
     Indication: OSTEOPOROSIS
     Route: 048
     Dates: start: 20020410, end: 20040529

REACTIONS (3)
  - ANAEMIA [None]
  - HAEMATEMESIS [None]
  - OESOPHAGEAL ULCER HAEMORRHAGE [None]
